FAERS Safety Report 6537223-1 (Version None)
Quarter: 2010Q1

REPORT INFORMATION
  Report Type: 
  Country: None (occurrence: None)
  Receive Date: 20100110
  Receipt Date: 20091228
  Transmission Date: 20100710
  Serious: Yes (Life-Threatening, Hospitalization)
  Sender: FDA-Public Use
  Company Number: 2009-00125

PATIENT
  Age: 60 Year

DRUGS (5)
  1. LISINOPRIL [Suspect]
     Indication: DRUG USE FOR UNKNOWN INDICATION
     Dosage: 40 MG, 2 IN 1 D
  2. NAPROXEN [Suspect]
     Indication: DRUG USE FOR UNKNOWN INDICATION
     Dosage: 1000 MG, 2 IN 1 D
  3. AMLODIPINE [Concomitant]
  4. CLOPIDOGREL [Concomitant]
  5. RANITIDINE [Concomitant]

REACTIONS (19)
  - ABDOMINAL DISCOMFORT [None]
  - BLOOD AMYLASE INCREASED [None]
  - BLOOD CALCIUM DECREASED [None]
  - BLOOD POTASSIUM INCREASED [None]
  - BLOOD PRESSURE INCREASED [None]
  - BLOOD SODIUM DECREASED [None]
  - CARBON DIOXIDE DECREASED [None]
  - CEREBROVASCULAR ACCIDENT [None]
  - DYSPNOEA [None]
  - ELECTROCARDIOGRAM QRS COMPLEX PROLONGED [None]
  - ELECTROCARDIOGRAM T WAVE ABNORMAL [None]
  - GUILLAIN-BARRE SYNDROME [None]
  - HAEMODIALYSIS [None]
  - LIPASE INCREASED [None]
  - MUSCULAR WEAKNESS [None]
  - NAUSEA [None]
  - RENAL FAILURE CHRONIC [None]
  - SPINAL CORD COMPRESSION [None]
  - VOMITING [None]
